FAERS Safety Report 20629086 (Version 1)
Quarter: 2022Q1

REPORT INFORMATION
  Report Type: Spontaneous
  Country: NO (occurrence: NO)
  Receive Date: 20220323
  Receipt Date: 20220323
  Transmission Date: 20220423
  Serious: Yes (Life-Threatening, Hospitalization, Other)
  Sender: FDA-Public Use
  Company Number: NO-ELI_LILLY_AND_COMPANY-NO202203008963

PATIENT
  Age: 40 Year
  Sex: Male
  Weight: 125 kg

DRUGS (1)
  1. ZYPREXA [Suspect]
     Active Substance: OLANZAPINE
     Indication: Psychotic disorder
     Dosage: UNK UNK, 2/M, 1 TIME EVERY 14 DAYS
     Route: 065

REACTIONS (2)
  - Psychotic disorder [Unknown]
  - Weight increased [Unknown]
